FAERS Safety Report 20394971 (Version 2)
Quarter: 2022Q1

REPORT INFORMATION
  Report Type: Report from Study
  Country: CA (occurrence: CA)
  Receive Date: 20220130
  Receipt Date: 20220223
  Transmission Date: 20220423
  Serious: Yes (Other)
  Sender: FDA-Public Use
  Company Number: CA-NOVARTISPH-NVSC2022CA010742

PATIENT
  Age: 50 Year
  Sex: Male

DRUGS (1)
  1. MAYZENT [Suspect]
     Active Substance: SIPONIMOD
     Indication: Secondary progressive multiple sclerosis
     Dosage: UNK
     Route: 048
     Dates: start: 20211211

REACTIONS (5)
  - Deep vein thrombosis [Unknown]
  - Chest discomfort [Unknown]
  - Aphasia [Unknown]
  - Phlebitis [Unknown]
  - Polyp [Unknown]

NARRATIVE: CASE EVENT DATE: 20220113
